FAERS Safety Report 4455097-X (Version None)
Quarter: 2004Q3

REPORT INFORMATION
  Report Type: 
  Country: None (occurrence: None)
  Receive Date: 20040917
  Receipt Date: 20040830
  Transmission Date: 20050211
  Serious: Yes (Other)
  Sender: FDA-Public Use
  Company Number: USA040876795

PATIENT
  Age: 48 Year
  Sex: Female
  Weight: 68 kg

DRUGS (11)
  1. HUMALOG [Suspect]
     Dates: start: 19960101
  2. HUMULIN R [Suspect]
     Dates: start: 19890101
  3. ASPIRIN [Concomitant]
  4. FUROSEMIDE [Concomitant]
  5. MULTI-VITAMIN [Concomitant]
  6. TRICOR 9FENOFIBRATE) [Concomitant]
  7. CRESTOR [Concomitant]
  8. CELEXA [Concomitant]
  9. VIOXX [Concomitant]
  10. LANTUS (INSULIN GARGINE) [Concomitant]
  11. NOVOLOG [Concomitant]

REACTIONS (12)
  - ARTHRITIS [None]
  - BACK PAIN [None]
  - BLOOD CHOLESTEROL ABNORMAL [None]
  - BLOOD GLUCOSE DECREASED [None]
  - BLOOD GLUCOSE INCREASED [None]
  - BLOOD TRIGLYCERIDES ABNORMAL [None]
  - DEPRESSION [None]
  - EYE HAEMORRHAGE [None]
  - MYOCARDIAL INFARCTION [None]
  - PHARMACEUTICAL PRODUCT COMPLAINT [None]
  - RENAL DISORDER [None]
  - VISUAL ACUITY REDUCED [None]
